FAERS Safety Report 4543792-3 (Version None)
Quarter: 2005Q1

REPORT INFORMATION
  Report Type: 
  Country: None (occurrence: None)
  Receive Date: 20050104
  Receipt Date: 20041223
  Transmission Date: 20050727
  Serious: Yes (Other)
  Sender: FDA-Public Use
  Company Number: US-JNJFOC-20041206628

PATIENT
  Sex: Female
  Weight: 53.52 kg

DRUGS (7)
  1. REMICADE [Suspect]
     Indication: RHEUMATOID ARTHRITIS
     Dosage: 200MG -400 MG
     Route: 042
  2. METHOTREXATE [Concomitant]
     Indication: RHEUMATOID ARTHRITIS
  3. PREDNISONE [Concomitant]
     Indication: STEROID THERAPY
  4. FOLIC ACID [Concomitant]
     Indication: BONE DENSITOMETRY
  5. PLAQUENIL [Concomitant]
  6. KDUR [Concomitant]
  7. ACTONIL [Concomitant]

REACTIONS (2)
  - LUPUS-LIKE SYNDROME [None]
  - VOMITING [None]
